FAERS Safety Report 10311318 (Version 1)
Quarter: 2014Q3

REPORT INFORMATION
  Report Type: Spontaneous
  Country: US (occurrence: None)
  Receive Date: 20140716
  Receipt Date: 20140716
  Transmission Date: 20150326
  Serious: Yes (Disabling)
  Sender: FDA-Public Use
  Company Number: None

PATIENT
  Age: 52 Year
  Sex: Male
  Weight: 84.82 kg

DRUGS (9)
  1. MAGNESIUM [Concomitant]
     Active Substance: MAGNESIUM
  2. TURMIERIC/CUCUMEN [Concomitant]
  3. ATORVASTATIN CALCIUM. [Suspect]
     Active Substance: ATORVASTATIN CALCIUM
     Indication: BLOOD CHOLESTEROL INCREASED
     Dosage: 1 ONCE DAILY TAKEN BY MOUTH
     Route: 048
     Dates: start: 20130103, end: 20140715
  4. VITAMIN D [Concomitant]
     Active Substance: CHOLECALCIFEROL
  5. CQ10 [Concomitant]
     Active Substance: UBIDECARENONE
  6. CALCIUM [Concomitant]
     Active Substance: CALCIUM
  7. GINGER ROOT [Concomitant]
  8. GARLIC. [Concomitant]
     Active Substance: GARLIC
  9. FISH OIL [Concomitant]
     Active Substance: FISH OIL

REACTIONS (7)
  - Pain in extremity [None]
  - Activities of daily living impaired [None]
  - Arthralgia [None]
  - Exercise tolerance decreased [None]
  - No therapeutic response [None]
  - Muscular weakness [None]
  - Myalgia [None]

NARRATIVE: CASE EVENT DATE: 20140614
